FAERS Safety Report 12901135 (Version 9)
Quarter: 2017Q2

REPORT INFORMATION
  Report Type: Spontaneous
  Country: US (occurrence: US)
  Receive Date: 20161101
  Receipt Date: 20170511
  Transmission Date: 20170830
  Serious: Yes (Congenital Anomaly, Other)
  Sender: FDA-Public Use
  Company Number: PHEH2016US028057

PATIENT
  Sex: Female

DRUGS (3)
  1. ZOFRAN [Suspect]
     Active Substance: ONDANSETRON HYDROCHLORIDE
     Indication: FOETAL EXPOSURE DURING PREGNANCY
     Dosage: MOTHER^S DOSE: 08 MG, PRN
     Route: 064
  2. ZOFRAN [Suspect]
     Active Substance: ONDANSETRON HYDROCHLORIDE
     Indication: FOETAL EXPOSURE DURING PREGNANCY
     Route: 064
  3. ZOFRAN ODT [Suspect]
     Active Substance: ONDANSETRON HYDROCHLORIDE
     Indication: FOETAL EXPOSURE DURING PREGNANCY
     Route: 064

REACTIONS (26)
  - Oropharyngeal pain [Unknown]
  - Foetal exposure during pregnancy [Unknown]
  - Pharyngitis [Unknown]
  - Hyperhidrosis [Unknown]
  - Endocrine disorder [Unknown]
  - Ventricular septal defect [Unknown]
  - Cough [Unknown]
  - Jaundice neonatal [Unknown]
  - Hypoacusis [Unknown]
  - Oedema neonatal [Unknown]
  - Cardiac murmur [Unknown]
  - Injury [Unknown]
  - Rhinorrhoea [Unknown]
  - Acute sinusitis [Unknown]
  - Flatulence [Unknown]
  - Cyanosis neonatal [Unknown]
  - Metabolic disorder [Unknown]
  - Rhinitis [Unknown]
  - Candida infection [Unknown]
  - Pyrexia [Unknown]
  - Atrial septal defect [Unknown]
  - Heart disease congenital [Unknown]
  - Congenital anomaly [Unknown]
  - Molluscum contagiosum [Unknown]
  - Eczema [Unknown]
  - Dyspnoea [Unknown]
